FAERS Safety Report 9206989 (Version 1)
Quarter: 2013Q2

REPORT INFORMATION
  Report Type: Spontaneous
  Country: US (occurrence: None)
  Receive Date: 20130402
  Receipt Date: 20130402
  Transmission Date: 20140414
  Serious: Yes (Other)
  Sender: FDA-Public Use
  Company Number: None

PATIENT
  Sex: Female

DRUGS (1)
  1. ERIVEDGE [Suspect]
     Route: 048

REACTIONS (3)
  - Fatigue [None]
  - Alopecia [None]
  - Constipation [None]
